FAERS Safety Report 9913052 (Version 2)
Quarter: 2014Q1

REPORT INFORMATION
  Report Type: Spontaneous
  Country: JP (occurrence: JP)
  Receive Date: 20140220
  Receipt Date: 20140321
  Transmission Date: 20141002
  Serious: Yes (Life-Threatening, Hospitalization)
  Sender: FDA-Public Use
  Company Number: JP-JNJFOC-20140208379

PATIENT
  Age: 83 Year
  Sex: Male
  Weight: 80 kg

DRUGS (15)
  1. XARELTO [Suspect]
     Indication: CEREBROVASCULAR ACCIDENT PROPHYLAXIS
     Route: 048
     Dates: start: 20140201, end: 20140209
  2. XARELTO [Suspect]
     Indication: ATRIAL FIBRILLATION
     Route: 048
     Dates: start: 20140201, end: 20140209
  3. CRAVIT [Suspect]
     Indication: PROPHYLAXIS
     Route: 048
     Dates: start: 20140228, end: 20140307
  4. CRAVIT [Suspect]
     Indication: PROPHYLAXIS
     Route: 048
     Dates: start: 20140204, end: 20140208
  5. DAONIL [Concomitant]
     Indication: DIABETES MELLITUS
     Route: 048
  6. RANITIDINE [Concomitant]
     Indication: GASTRITIS
     Route: 048
  7. ALDACTONE A [Concomitant]
     Indication: CARDIAC FAILURE
     Route: 048
  8. JANUVIA [Concomitant]
     Indication: DIABETES MELLITUS
     Route: 048
  9. AMLODIN [Concomitant]
     Indication: HYPERTENSION
     Route: 048
  10. ITOROL [Concomitant]
     Indication: ANGINA PECTORIS
     Route: 048
  11. CARDENALIN [Concomitant]
     Indication: HYPERTENSION
     Route: 048
  12. LIVALO [Concomitant]
     Indication: HYPERLIPIDAEMIA
     Route: 048
  13. LASIX [Concomitant]
     Indication: CARDIAC FAILURE
     Route: 048
  14. BAYASPIRIN [Concomitant]
     Indication: ANGINA PECTORIS
     Route: 048
  15. MUCOSTA [Concomitant]
     Indication: GASTRITIS
     Route: 048

REACTIONS (2)
  - Interstitial lung disease [Recovering/Resolving]
  - Lung disorder [Recovering/Resolving]
